FAERS Safety Report 18387241 (Version 1)
Quarter: 2020Q4

REPORT INFORMATION
  Report Type: Spontaneous
  Country: US (occurrence: US)
  Receive Date: 20201015
  Receipt Date: 20201015
  Transmission Date: 20210114
  Serious: No
  Sender: FDA-Public Use
  Company Number: None

PATIENT
  Age: 53 Year
  Sex: Female
  Weight: 66.6 kg

DRUGS (4)
  1. VITAMIN D 5000IU [Concomitant]
  2. BIO-IDENTICAL HORMONE REPLACEMENT [Concomitant]
  3. NATURE-THROID [Suspect]
     Active Substance: THYROID, PORCINE
     Indication: HYPOTHYROIDISM
     Dates: start: 20180518, end: 20190503
  4. ARMOUR THYROID [Concomitant]
     Active Substance: THYROID, PORCINE

REACTIONS (5)
  - Trichorrhexis [None]
  - Fatigue [None]
  - Constipation [None]
  - Weight increased [None]
  - Hair texture abnormal [None]
